FAERS Safety Report 16048295 (Version 7)
Quarter: 2022Q4

REPORT INFORMATION
  Report Type: Spontaneous
  Country: US (occurrence: US)
  Receive Date: 20190307
  Receipt Date: 20221121
  Transmission Date: 20230113
  Serious: Yes (Other)
  Sender: FDA-Public Use
  Company Number: US-PFIZER INC-2019100655

PATIENT
  Age: 80 Year
  Sex: Female

DRUGS (1)
  1. XELJANZ XR [Suspect]
     Active Substance: TOFACITINIB CITRATE
     Dosage: 11 MG, EVERY OTHER DAY
     Route: 048

REACTIONS (6)
  - Dementia [Unknown]
  - Dementia Alzheimer^s type [Unknown]
  - Cognitive disorder [Unknown]
  - Kidney infection [Unknown]
  - Off label use [Unknown]
  - Memory impairment [Unknown]
